FAERS Safety Report 14057917 (Version 7)
Quarter: 2017Q4

REPORT INFORMATION
  Report Type: Report from Study
  Country: FR (occurrence: FR)
  Receive Date: 20171006
  Receipt Date: 20171130
  Transmission Date: 20180321
  Serious: Yes (Death, Hospitalization, Other)
  Sender: FDA-Public Use
  Company Number: FR-BRISTOL-MYERS SQUIBB COMPANY-BMS-2017-089701

PATIENT
  Age: 53 Year
  Sex: Male
  Weight: 77 kg

DRUGS (5)
  1. LEVOCARNIL                         /00878601/ [Concomitant]
     Indication: GASTROINTESTINAL DISORDER
     Dosage: 1 DF, BID
     Route: 065
     Dates: start: 20140324
  2. SOFOSBUVIR [Suspect]
     Active Substance: SOFOSBUVIR
     Indication: HEPATITIS C VIRUS TEST
     Dosage: 400 MG, QD
     Route: 065
     Dates: start: 20140128, end: 20140616
  3. CORGARD [Concomitant]
     Active Substance: NADOLOL
     Indication: PRODUCT USED FOR UNKNOWN INDICATION
     Dosage: 80 MG, QD
     Route: 065
     Dates: start: 201301, end: 20150804
  4. DACLATASVIR DIHYDROCHLORIDE [Suspect]
     Active Substance: DACLATASVIR DIHYDROCHLORIDE
     Indication: HEPATITIS C VIRUS TEST
     Dosage: 60 MG, QD
     Route: 065
     Dates: start: 20140519, end: 20140616
  5. RIBAVIRIN. [Suspect]
     Active Substance: RIBAVIRIN
     Indication: HEPATITIS C VIRUS TEST
     Dosage: 1000 MG, QD
     Route: 065
     Dates: start: 20140128, end: 20140616

REACTIONS (9)
  - Hypothermia [Unknown]
  - Peritonitis [Fatal]
  - Oesophageal varices haemorrhage [Unknown]
  - General physical health deterioration [Unknown]
  - Septic shock [Unknown]
  - Multiple organ dysfunction syndrome [Unknown]
  - Hepatic encephalopathy [Unknown]
  - Duodenal ulcer [Unknown]
  - Hepatocellular carcinoma [Recovering/Resolving]

NARRATIVE: CASE EVENT DATE: 201404
